FAERS Safety Report 13429081 (Version 1)
Quarter: 2017Q2

REPORT INFORMATION
  Report Type: Spontaneous
  Country: US (occurrence: US)
  Receive Date: 20170411
  Receipt Date: 20170411
  Transmission Date: 20170830
  Serious: No
  Sender: FDA-Public Use
  Company Number: US-SEBELA IRELAND LIMITED-2016SEB01542

PATIENT
  Age: 82 Year
  Sex: Male
  Weight: 83.9 kg

DRUGS (1)
  1. NAFTIN [Suspect]
     Active Substance: NAFTIFINE HYDROCHLORIDE
     Indication: FUNGAL INFECTION
     Dosage: UNK UNK, 1X/DAY
     Route: 061
     Dates: start: 20161202, end: 20170105

REACTIONS (6)
  - Application site pain [Recovering/Resolving]
  - Drug ineffective [Not Recovered/Not Resolved]
  - Erythema [Recovering/Resolving]
  - Application site irritation [Recovered/Resolved]
  - Fungal infection [Recovering/Resolving]
  - Inflammation [Recovering/Resolving]

NARRATIVE: CASE EVENT DATE: 20161202
